FAERS Safety Report 23945815 (Version 1)
Quarter: 2024Q2

REPORT INFORMATION
  Report Type: Spontaneous
  Country: BA (occurrence: BA)
  Receive Date: 20240606
  Receipt Date: 20240606
  Transmission Date: 20240716
  Serious: Yes (Other)
  Sender: FDA-Public Use
  Company Number: BA-PFIZER INC-PV202400073247

PATIENT
  Age: 54 Year
  Sex: Female

DRUGS (2)
  1. PALBOCICLIB [Suspect]
     Active Substance: PALBOCICLIB
     Dosage: FOR 21 DAYS
     Dates: start: 202403
  2. FULVESTRANT [Suspect]
     Active Substance: FULVESTRANT
     Dosage: 500 MG
     Route: 058
     Dates: start: 202403

REACTIONS (5)
  - Blood potassium decreased [Not Recovered/Not Resolved]
  - Blood calcium decreased [Recovering/Resolving]
  - Blood chloride increased [Unknown]
  - Blood creatinine decreased [Unknown]
  - Red blood cell count decreased [Unknown]

NARRATIVE: CASE EVENT DATE: 20240401
